FAERS Safety Report 13597647 (Version 1)
Quarter: 2017Q2

REPORT INFORMATION
  Report Type: Spontaneous
  Country: US (occurrence: US)
  Receive Date: 20170423
  Receipt Date: 20170423
  Transmission Date: 20170830
  Serious: Yes (Hospitalization)
  Sender: FDA-Public Use
  Company Number: None

PATIENT
  Age: 67 Year
  Sex: Male
  Weight: 97.49 kg

DRUGS (1)
  1. RITUXIMAB (MOAB C2B8 ANTI CD20, CHIMERIC) [Suspect]
     Active Substance: RITUXIMAB
     Dates: end: 20170125

REACTIONS (24)
  - Herpes simplex test positive [None]
  - Rash [None]
  - Pleural effusion [None]
  - Pulmonary embolism [None]
  - Oxygen saturation decreased [None]
  - Necrosis [None]
  - Sinusitis bacterial [None]
  - Gangrene [None]
  - Mantle cell lymphoma [None]
  - Lung infiltration [None]
  - Nasal disorder [None]
  - Pseudomonas test positive [None]
  - Sepsis [None]
  - Candida test positive [None]
  - Atrial fibrillation [None]
  - Human rhinovirus test positive [None]
  - Chest X-ray abnormal [None]
  - Pyrexia [None]
  - Dyspnoea [None]
  - Blister [None]
  - Haematochezia [None]
  - Respiratory failure [None]
  - Haemoglobin decreased [None]
  - Enterovirus test positive [None]

NARRATIVE: CASE EVENT DATE: 20170321
